FAERS Safety Report 26068695 (Version 2)
Quarter: 2025Q4

REPORT INFORMATION
  Report Type: Spontaneous
  Country: BR (occurrence: BR)
  Receive Date: 20251120
  Receipt Date: 20251215
  Transmission Date: 20260118
  Serious: Yes (Other)
  Sender: DAIICHI
  Company Number: BR-DSJP-DS-2025-176932-BR

PATIENT
  Age: 69 Year
  Sex: Female

DRUGS (4)
  1. ENHERTU [Suspect]
     Active Substance: FAM-TRASTUZUMAB DERUXTECAN-NXKI
     Indication: Invasive breast carcinoma
     Dosage: 5.4 MG/KG, EVERY 21 DAYS
     Route: 042
     Dates: start: 202202
  2. ENHERTU [Suspect]
     Active Substance: FAM-TRASTUZUMAB DERUXTECAN-NXKI
     Dosage: UNK
     Route: 042
     Dates: start: 202502
  3. SIMVASTATIN [Concomitant]
     Active Substance: SIMVASTATIN
     Indication: Hypercholesterolaemia
     Dosage: UNK
     Route: 065
  4. PURAN [Concomitant]
     Active Substance: LEVOTHYROXINE SODIUM
     Indication: Hypothyroidism
     Dosage: UNK
     Route: 065

REACTIONS (6)
  - Pulmonary fibrosis [Unknown]
  - Metastases to bone [Unknown]
  - Metastases to liver [Unknown]
  - SARS-CoV-2 test positive [Unknown]
  - Weight decreased [Unknown]
  - Thrombocytopenia [Recovered/Resolved]

NARRATIVE: CASE EVENT DATE: 20220201
